FAERS Safety Report 5186505-7 (Version None)
Quarter: 2006Q4

REPORT INFORMATION
  Report Type: 
  Country: None (occurrence: None)
  Receive Date: 20061213
  Receipt Date: 20061204
  Transmission Date: 20070319
  Serious: Yes (Death, Hospitalization)
  Sender: FDA-Public Use
  Company Number: GXKR2006AR07961

PATIENT
  Age: 92 Year
  Sex: Male

DRUGS (1)
  1. AMLODIPINE + BENAZEPRIL [Suspect]
     Indication: HYPERTENSION
     Dosage: 5 MG, QD, ORAL
     Route: 048
     Dates: start: 20060920, end: 20061109

REACTIONS (1)
  - RENAL FAILURE [None]
